FAERS Safety Report 15355159 (Version 2)
Quarter: 2018Q4

REPORT INFORMATION
  Report Type: Spontaneous
  Country: US (occurrence: US)
  Receive Date: 20180906
  Receipt Date: 20181009
  Transmission Date: 20190204
  Serious: No
  Sender: FDA-Public Use
  Company Number: US-PFIZER INC-2018358549

PATIENT
  Age: 75 Year
  Sex: Female
  Weight: 63.5 kg

DRUGS (1)
  1. ADVIL [Suspect]
     Active Substance: IBUPROFEN
     Dosage: UNK

REACTIONS (2)
  - Dysphagia [Unknown]
  - Product use complaint [Unknown]

NARRATIVE: CASE EVENT DATE: 201808
